FAERS Safety Report 25094820 (Version 1)
Quarter: 2025Q1

REPORT INFORMATION
  Report Type: Spontaneous
  Country: US (occurrence: None)
  Receive Date: 20250318
  Receipt Date: 20250318
  Transmission Date: 20250409
  Serious: Yes (Other)
  Sender: FDA-CTU
  Company Number: None

PATIENT
  Age: 38 Year
  Sex: Male
  Weight: 68.04 kg

DRUGS (2)
  1. BRIXADI [Suspect]
     Active Substance: BUPRENORPHINE
     Indication: Drug abuse
     Dates: start: 20241113
  2. PAXIL [Suspect]
     Active Substance: PAROXETINE HYDROCHLORIDE

REACTIONS (6)
  - Heart rate increased [None]
  - Heart rate irregular [None]
  - Insomnia [None]
  - Headache [None]
  - Confusional state [None]
  - Muscle spasms [None]

NARRATIVE: CASE EVENT DATE: 20241116
